FAERS Safety Report 7781062-0 (Version None)
Quarter: 2011Q3

REPORT INFORMATION
  Report Type: 
  Country: None (occurrence: None)
  Receive Date: 20110927
  Receipt Date: 20110919
  Transmission Date: 20111222
  Serious: Yes (Hospitalization)
  Sender: FDA-Public Use
  Company Number: US-UCBSA-041686

PATIENT
  Sex: Female
  Weight: 138.3 kg

DRUGS (20)
  1. CYMBALTA [Concomitant]
     Indication: ARTHRALGIA
     Dates: start: 20110601, end: 20110701
  2. CYMBALTA [Concomitant]
     Dates: start: 20110702, end: 20110913
  3. ADVAIR DISKUS 100/50 [Concomitant]
     Route: 055
     Dates: start: 20110628
  4. ULTRAM [Concomitant]
     Indication: RHEUMATOID ARTHRITIS
     Dates: start: 20090528, end: 20110531
  5. IBUPROFEN [Concomitant]
     Dates: start: 20070101, end: 20110531
  6. VOLTAREN [Concomitant]
     Indication: ARTHRALGIA
     Dosage: 1 APP
     Route: 061
     Dates: start: 20100324, end: 20110913
  7. CALCIUM CARBONATE [Concomitant]
     Indication: GASTROOESOPHAGEAL REFLUX DISEASE
     Dosage: 2 TABS
     Dates: start: 20090101
  8. CERTOLIZUMAB PEGOL [Suspect]
     Indication: RHEUMATOID ARTHRITIS
     Dosage: FROM 22/JUN/2011 TO 17/AUG/2011 400 MG. NO. OF DOSES RECEIVED:3
     Route: 058
     Dates: start: 20110817, end: 20110913
  9. HYDROCHLOROTHIAZIDE [Concomitant]
     Indication: OEDEMA PERIPHERAL
     Dates: start: 20110601, end: 20110819
  10. IBUPROFEN [Concomitant]
     Indication: RHEUMATOID ARTHRITIS
     Dates: start: 20070101, end: 20110531
  11. ZITHROMAX [Concomitant]
     Dates: start: 20110805, end: 20110809
  12. DEXILANT [Concomitant]
     Indication: GASTROOESOPHAGEAL REFLUX DISEASE
     Dates: start: 20110622, end: 20110913
  13. VERAMIST [Concomitant]
     Indication: NASAL DISCOMFORT
     Dosage: 1 SPRAY
     Route: 055
     Dates: start: 20110801, end: 20110913
  14. LISINOPRIL [Concomitant]
     Indication: HYPERTENSION
     Dosage: 10/125 MG
     Dates: start: 20110820, end: 20110913
  15. ALBUTEROL [Concomitant]
     Indication: ASTHMA
     Dosage: 1 PUFF AND ALSO VIA NEBULIZER AS NECESSARY
     Route: 055
     Dates: start: 19930101
  16. SINGULAIR [Concomitant]
     Indication: ASTHMA
     Route: 055
     Dates: start: 20110401
  17. MOBIC [Concomitant]
     Indication: RHEUMATOID ARTHRITIS
     Dates: start: 20110601, end: 20110913
  18. ADVAIR DISKUS 100/50 [Concomitant]
     Indication: ASTHMA
     Route: 055
     Dates: start: 20110401, end: 20110627
  19. NEOSPORIN [Concomitant]
     Indication: NASAL DISCOMFORT
     Dosage: 1 APP
     Dates: start: 20110801, end: 20110913
  20. ZITHROMAX [Concomitant]
     Indication: SINUSITIS
     Dates: start: 20110804, end: 20110804

REACTIONS (1)
  - CARDIOMEGALY [None]
